FAERS Safety Report 4337762-8 (Version None)
Quarter: 2004Q2

REPORT INFORMATION
  Report Type: 
  Country: None (occurrence: None)
  Receive Date: 20040413
  Receipt Date: 20040106
  Transmission Date: 20050107
  Serious: Yes (Hospitalization)
  Sender: FDA-Public Use
  Company Number: PHEH2004US00536

PATIENT
  Age: 70 Year
  Sex: Male
  Weight: 114 kg

DRUGS (18)
  1. ZELNORM [Suspect]
     Indication: IMPAIRED GASTRIC EMPTYING
     Dosage: 6 MG, ONCE/SINGLE
     Route: 048
     Dates: start: 20031222, end: 20031222
  2. LOTENSIN [Concomitant]
     Indication: HYPERTENSION
     Dosage: 40 MG, QD
  3. GLUCOTROL [Concomitant]
     Indication: DIABETES MELLITUS NON-INSULIN-DEPENDENT
     Dosage: 10 MG, QD
  4. LANTUS [Concomitant]
     Indication: DIABETES MELLITUS NON-INSULIN-DEPENDENT
     Dosage: 45 UNITS, QD
     Route: 058
  5. NOVOLOG [Concomitant]
     Indication: DIABETES MELLITUS NON-INSULIN-DEPENDENT
     Dosage: 10 UNITS, PRN
  6. HYDROCHLOROTHIAZIDE [Concomitant]
     Indication: HYPERTENSION
     Dosage: 37.5 MG, UNK
  7. AMLODIPINE [Concomitant]
     Indication: HYPERTENSION
     Dosage: 10 MG, UNK
  8. FUROSEMIDE [Concomitant]
     Dosage: 40 MG, UNK
  9. DYAZIDE [Concomitant]
  10. NORVASC [Concomitant]
  11. COSOPT [Concomitant]
  12. GLUCOSAMINE [Concomitant]
  13. CHONDROITIN A [Concomitant]
  14. VITAMIN C [Concomitant]
  15. VITAMIN E [Concomitant]
  16. MIRALAX [Concomitant]
  17. ASPIRIN [Concomitant]
  18. OMEGA 3 [Concomitant]

REACTIONS (16)
  - ASTHENIA [None]
  - BLOOD PRESSURE DIASTOLIC DECREASED [None]
  - DYSARTHRIA [None]
  - DYSPNOEA [None]
  - ELECTROCARDIOGRAM ABNORMAL [None]
  - FATIGUE [None]
  - FLUSHING [None]
  - HYPERSENSITIVITY [None]
  - HYPOTENSION [None]
  - MEDICATION ERROR [None]
  - PHARMACEUTICAL PRODUCT COMPLAINT [None]
  - PRURITUS [None]
  - TONGUE DISORDER [None]
  - TONGUE OEDEMA [None]
  - URTICARIA [None]
  - VOMITING [None]
